FAERS Safety Report 6974721-0 (Version None)
Quarter: 2010Q3

REPORT INFORMATION
  Report Type: 
  Country: None (occurrence: None)
  Receive Date: 20100909
  Receipt Date: 20090205
  Transmission Date: 20110219
  Serious: Yes (Other)
  Sender: FDA-Public Use
  Company Number: US-WYE-H06921808

PATIENT
  Sex: Female
  Weight: 82.63 kg

DRUGS (4)
  1. PRISTIQ [Suspect]
     Indication: MAJOR DEPRESSION
     Route: 048
     Dates: start: 20081001, end: 20081110
  2. ESTRADIOL [Concomitant]
     Indication: HORMONE REPLACEMENT THERAPY
  3. IBUPROFEN [Concomitant]
     Indication: PAIN
     Dosage: ^800 MG AS NEEDED^
  4. ACETAMINOPHEN WITH PROPOXYPHENE HCL TAB [Concomitant]
     Indication: PAIN
     Dosage: ^ N-100 AS NEEDED^

REACTIONS (3)
  - BLOOD PRESSURE INCREASED [None]
  - CONDITION AGGRAVATED [None]
  - DIZZINESS [None]
